FAERS Safety Report 18030794 (Version 2)
Quarter: 2020Q3

REPORT INFORMATION
  Report Type: Report from Study
  Country: None (occurrence: US)
  Receive Date: 20200715
  Receipt Date: 20200902
  Transmission Date: 20201103
  Serious: Yes (Hospitalization, Other)
  Sender: FDA-Public Use
  Company Number: US-ABBVIE-20K-163-3413475-00

PATIENT
  Age: 63 Year
  Sex: Female
  Weight: 112.14 kg

DRUGS (4)
  1. METHOTREXATE. [Concomitant]
     Active Substance: METHOTREXATE
     Indication: PRODUCT USED FOR UNKNOWN INDICATION
  2. HUMIRA [Suspect]
     Active Substance: ADALIMUMAB
     Route: 058
     Dates: start: 20200423
  3. HUMIRA [Suspect]
     Active Substance: ADALIMUMAB
     Indication: UVEITIS
     Route: 058
     Dates: start: 20190919
  4. HUMIRA [Suspect]
     Active Substance: ADALIMUMAB
     Route: 058
     Dates: start: 20200102, end: 202004

REACTIONS (15)
  - Joint swelling [Not Recovered/Not Resolved]
  - Thrombosis [Not Recovered/Not Resolved]
  - Contusion [Unknown]
  - Skin laceration [Not Recovered/Not Resolved]
  - Joint injury [Not Recovered/Not Resolved]
  - Pulmonary thrombosis [Not Recovered/Not Resolved]
  - Limb injury [Not Recovered/Not Resolved]
  - Increased tendency to bruise [Not Recovered/Not Resolved]
  - Fall [Not Recovered/Not Resolved]
  - Arthralgia [Unknown]
  - Rash macular [Not Recovered/Not Resolved]
  - Embolism [Unknown]
  - Haemarthrosis [Unknown]
  - Asthenia [Unknown]
  - Infection susceptibility increased [Not Recovered/Not Resolved]

NARRATIVE: CASE EVENT DATE: 202004
